FAERS Safety Report 20570295 (Version 5)
Quarter: 2024Q1

REPORT INFORMATION
  Report Type: Spontaneous
  Country: US (occurrence: US)
  Receive Date: 20220309
  Receipt Date: 20240119
  Transmission Date: 20240409
  Serious: Yes (Hospitalization, Disabling, Other)
  Sender: FDA-Public Use
  Company Number: US-ORGANON-O2203USA000735

PATIENT
  Sex: Female

DRUGS (2)
  1. SINGULAIR [Suspect]
     Active Substance: MONTELUKAST SODIUM
     Dosage: 1 TABLET BY MOUTH EVERY EVENING
     Route: 048
     Dates: start: 1998, end: 2019
  2. SINGULAIR [Suspect]
     Active Substance: MONTELUKAST SODIUM
     Dosage: CHEW 1 TABLET, QPM
     Route: 048

REACTIONS (20)
  - Neuropsychological symptoms [Not Recovered/Not Resolved]
  - Migraine [Unknown]
  - Fracture [Unknown]
  - Suicide attempt [Unknown]
  - Anxiety [Not Recovered/Not Resolved]
  - Depression [Recovered/Resolved]
  - Suicidal ideation [Unknown]
  - Panic attack [Unknown]
  - Abnormal behaviour [Unknown]
  - Seasonal allergy [Unknown]
  - Asthma [Unknown]
  - Back pain [Unknown]
  - Ligament rupture [Unknown]
  - Food allergy [Unknown]
  - COVID-19 [Recovered/Resolved]
  - Insomnia [Unknown]
  - Arthralgia [Unknown]
  - Headache [Unknown]
  - Concussion [Recovered/Resolved]
  - Eating disorder [Unknown]

NARRATIVE: CASE EVENT DATE: 20040101
